FAERS Safety Report 21267565 (Version 6)
Quarter: 2024Q2

REPORT INFORMATION
  Report Type: Report from Study
  Country: US (occurrence: US)
  Receive Date: 20220829
  Receipt Date: 20240423
  Transmission Date: 20240716
  Serious: Yes (Other)
  Sender: FDA-Public Use
  Company Number: US-JAZZ-2022-US-011960

PATIENT
  Age: 24 Year
  Sex: Female

DRUGS (14)
  1. XYWAV [Suspect]
     Active Substance: CALCIUM OXYBATE\MAGNESIUM OXYBATE\POTASSIUM OXYBATE\SODIUM OXYBATE
     Indication: Narcolepsy
     Dosage: 2.25 GRAM, QD
     Route: 048
  2. XYWAV [Suspect]
     Active Substance: CALCIUM OXYBATE\MAGNESIUM OXYBATE\POTASSIUM OXYBATE\SODIUM OXYBATE
     Indication: Cataplexy
     Dosage: 2.5 GRAM, BID
     Route: 048
  3. XYWAV [Suspect]
     Active Substance: CALCIUM OXYBATE\MAGNESIUM OXYBATE\POTASSIUM OXYBATE\SODIUM OXYBATE
     Indication: Somnolence
     Dosage: 3 GRAM, BID
  4. CETIRIZINE [Suspect]
     Active Substance: CETIRIZINE HYDROCHLORIDE
     Indication: Product used for unknown indication
  5. CLINDAMYCIN [Concomitant]
     Active Substance: CLINDAMYCIN
     Indication: Product used for unknown indication
     Dosage: EVERY EIGHT  HOURS FOR 7 DAYS
  6. BENADRYL [Concomitant]
     Active Substance: DIPHENHYDRAMINE HYDROCHLORIDE
     Indication: Product used for unknown indication
     Dosage: UNK
  7. TRIAMCINOLONE [Concomitant]
     Active Substance: TRIAMCINOLONE
     Indication: Bite
     Dosage: UNK
     Dates: start: 20220414
  8. MENSTRUAL COMPLETE [Concomitant]
     Active Substance: ACETAMINOPHEN\CAFFEINE\PYRILAMINE MALEATE
     Indication: Product used for unknown indication
     Dosage: UNK
     Dates: start: 20220504
  9. IBUPROFEN [Concomitant]
     Active Substance: IBUPROFEN
     Indication: Product used for unknown indication
     Dosage: UNK
     Dates: start: 20221205
  10. CYANOCOBALAMIN [Concomitant]
     Active Substance: CYANOCOBALAMIN
     Indication: Product used for unknown indication
     Dosage: 1,000 MCG/ML VL
     Dates: start: 20230810
  11. FOLIC ACID [Concomitant]
     Active Substance: FOLIC ACID
     Dosage: UNK
     Dates: start: 20230815
  12. AZITHROMYCIN [Concomitant]
     Active Substance: AZITHROMYCIN
     Indication: Product used for unknown indication
     Dosage: UNK
     Dates: start: 20240216
  13. CEFDINIR [Concomitant]
     Active Substance: CEFDINIR
     Indication: Product used for unknown indication
     Dosage: UNK
     Dates: start: 20240301
  14. AZELAIC ACID [Concomitant]
     Active Substance: AZELAIC ACID
     Indication: Product used for unknown indication
     Dosage: UNK
     Dates: start: 20240301

REACTIONS (32)
  - Dystonia [Unknown]
  - Tourette^s disorder [Unknown]
  - Anaphylactic reaction [Unknown]
  - Gout [Unknown]
  - Chills [Unknown]
  - Visual impairment [Unknown]
  - Cough [Unknown]
  - Food allergy [Unknown]
  - Memory impairment [Unknown]
  - Paraesthesia [Unknown]
  - Dyspnoea [Unknown]
  - Tremor [Unknown]
  - Dizziness [Unknown]
  - Fatigue [Unknown]
  - Nightmare [Unknown]
  - Pain in extremity [Unknown]
  - Sedation [Unknown]
  - Feeling abnormal [Unknown]
  - Abdominal discomfort [Unknown]
  - Thermal burn [Unknown]
  - Arthropod bite [Unknown]
  - Headache [Unknown]
  - Anaemia [Unknown]
  - Urticaria [Unknown]
  - Vitamin B complex deficiency [Unknown]
  - Tooth disorder [Unknown]
  - Muscle injury [Recovered/Resolved]
  - Pre-existing condition improved [Unknown]
  - Drug ineffective [Unknown]
  - Product dose omission issue [Unknown]
  - Product administration interrupted [Unknown]
  - Medical procedure [Unknown]

NARRATIVE: CASE EVENT DATE: 20080101
